FAERS Safety Report 6970326-6 (Version None)
Quarter: 2010Q3

REPORT INFORMATION
  Report Type: 
  Country: None (occurrence: None)
  Receive Date: 20100908
  Receipt Date: 20100901
  Transmission Date: 20110219
  Serious: Yes (Death)
  Sender: FDA-Public Use
  Company Number: US-CELGENEUS-163-21880-10090255

PATIENT
  Sex: Male

DRUGS (2)
  1. REVLIMID [Suspect]
     Route: 048
     Dates: start: 20100501
  2. REVLIMID [Suspect]
     Dosage: 1 CAPSULE/2 CAPSULES
     Route: 048
     Dates: start: 20100601, end: 20100804

REACTIONS (1)
  - DEATH [None]
